FAERS Safety Report 4335990-9 (Version None)
Quarter: 2004Q2

REPORT INFORMATION
  Report Type: 
  Country: None (occurrence: None)
  Receive Date: 20040406
  Receipt Date: 20040222
  Transmission Date: 20050107
  Serious: Yes (Life-Threatening)
  Sender: FDA-Public Use
  Company Number: 04P-062-0254399-00

PATIENT
  Sex: Female

DRUGS (2)
  1. HUMIRA [Suspect]
     Dosage: 40 MG
     Dates: start: 20030901
  2. METHOTREXATE SODIUIM [Concomitant]

REACTIONS (2)
  - ANAPHYLACTOID REACTION [None]
  - HYPERSENSITIVITY [None]
